FAERS Safety Report 10082091 (Version 1)
Quarter: 2014Q2

REPORT INFORMATION
  Report Type: Report from Study
  Country: AU (occurrence: AU)
  Receive Date: 20140416
  Receipt Date: 20140416
  Transmission Date: 20141212
  Serious: Yes (Other)
  Sender: FDA-Public Use
  Company Number: AU-BRISTOL-MYERS SQUIBB COMPANY-20615175

PATIENT
  Age: 61 Year
  Sex: Female
  Weight: 83 kg

DRUGS (8)
  1. ORENCIA [Suspect]
     Indication: RHEUMATOID ARTHRITIS
     Route: 042
     Dates: start: 20110718
  2. METHOTREXATE [Concomitant]
  3. OXYCONTIN [Concomitant]
  4. PREDNISOLONE [Concomitant]
  5. FOLIC ACID [Concomitant]
  6. LANTUS [Concomitant]
  7. PRASUGREL [Concomitant]
  8. ALLOPURINOL [Concomitant]

REACTIONS (2)
  - Gout [Recovering/Resolving]
  - Renal impairment [Unknown]
